FAERS Safety Report 9160281 (Version 2)
Quarter: 2013Q2

REPORT INFORMATION
  Report Type: Report from Study
  Country: JP (occurrence: JP)
  Receive Date: 20130313
  Receipt Date: 20130612
  Transmission Date: 20140414
  Serious: Yes (Hospitalization)
  Sender: FDA-Public Use
  Company Number: JP-ELI_LILLY_AND_COMPANY-JP201303001137

PATIENT
  Age: 76 Year
  Sex: Female

DRUGS (8)
  1. DULOXETINE HYDROCHLORIDE [Suspect]
     Indication: MAJOR DEPRESSION
     Dosage: 20 MG, QD
     Route: 048
     Dates: start: 20110813, end: 20110815
  2. PAXIL [Concomitant]
     Indication: MAJOR DEPRESSION
     Dosage: UNK
     Dates: end: 20110811
  3. PAXIL [Concomitant]
     Dosage: UNK
     Dates: start: 20110812, end: 20110815
  4. PAXIL [Concomitant]
     Dosage: UNK
     Dates: start: 20110816
  5. RIZE [Concomitant]
     Indication: MAJOR DEPRESSION
     Dosage: UNK
  6. SOLANAX [Concomitant]
     Indication: MAJOR DEPRESSION
     Dosage: UNK, PRN
  7. MAGNESIUM OXIDE HEAVY [Concomitant]
     Indication: CONSTIPATION
     Dosage: UNK
  8. CEREKINON [Concomitant]
     Indication: GASTROINTESTINAL DISORDER
     Dosage: UNK

REACTIONS (1)
  - Hepatic function abnormal [Recovered/Resolved]
